FAERS Safety Report 9344902 (Version 1)
Quarter: 2013Q2

REPORT INFORMATION
  Report Type: Spontaneous
  Country: ES (occurrence: ES)
  Receive Date: 20130612
  Receipt Date: 20130612
  Transmission Date: 20140414
  Serious: Yes (Hospitalization)
  Sender: FDA-Public Use
  Company Number: ES-TEVA-411015ISR

PATIENT
  Age: 81 Year
  Sex: Female

DRUGS (8)
  1. TRAMADOL [Suspect]
     Indication: OSTEOARTHRITIS
     Dosage: 100 MILLIGRAM DAILY; EXTENDED RELEASE
     Route: 065
  2. IRON [Concomitant]
     Dosage: 40 MILLIGRAM DAILY;
     Route: 065
  3. CALCIUM, COLECALCIFEROL [Concomitant]
     Dosage: ONE TABLET: CALCIUM 1500MG/COLECALCIFEROL 400UI PER DAY
     Route: 065
  4. OMEPRAZOLE [Concomitant]
     Dosage: 20 MILLIGRAM DAILY;
     Route: 065
  5. SERTRALINE [Concomitant]
     Dosage: 50 MILLIGRAM DAILY;
     Route: 065
  6. CODEINE [Concomitant]
     Dosage: 3 ML DAILY; SOLUTION
     Route: 048
  7. DICLOFENAC [Concomitant]
     Dosage: 100 MILLIGRAM DAILY;
     Route: 065
  8. PARACETAMOL [Concomitant]
     Dosage: 3000 MILLIGRAM DAILY;
     Route: 065

REACTIONS (1)
  - Acute psychosis [Recovering/Resolving]
